FAERS Safety Report 4701578-0 (Version None)
Quarter: 2005Q2

REPORT INFORMATION
  Report Type: 
  Country: None (occurrence: None)
  Receive Date: 20050628
  Receipt Date: 20050601
  Transmission Date: 20051028
  Serious: Yes (Disabling, Other)
  Sender: FDA-Public Use
  Company Number: 2005AP03190

PATIENT
  Age: 75 Year
  Sex: Male

DRUGS (7)
  1. CARBOCAIN [Suspect]
     Indication: EPIDURAL ANAESTHESIA
     Route: 008
     Dates: start: 20041210, end: 20041210
  2. DIPRIVAN [Suspect]
     Indication: INDUCTION OF ANAESTHESIA
     Route: 042
     Dates: start: 20041210, end: 20041210
  3. ANAPEINE [Suspect]
     Indication: EPIDURAL ANAESTHESIA
     Route: 008
     Dates: start: 20041210, end: 20041210
  4. ANAPEINE [Suspect]
     Dosage: GIVEN ABOUT  ONE HOUR AFTER OPERATION
     Route: 008
     Dates: start: 20041210, end: 20041210
  5. VECURONIUM BROMIDE [Concomitant]
  6. OXYGEN [Concomitant]
     Route: 055
  7. SEVOFLURANE [Concomitant]
     Route: 055

REACTIONS (1)
  - SPINAL CORD INFARCTION [None]
